FAERS Safety Report 6708930-2 (Version None)
Quarter: 2010Q2

REPORT INFORMATION
  Report Type: 
  Country: None (occurrence: None)
  Receive Date: 20100504
  Receipt Date: 20100420
  Transmission Date: 20101027
  Serious: Yes (Hospitalization)
  Sender: FDA-Public Use
  Company Number: US-BAYER-200938945NA

PATIENT
  Age: 31 Year
  Sex: Female
  Weight: 52 kg

DRUGS (6)
  1. YASMIN [Suspect]
     Indication: PREMENSTRUAL SYNDROME
     Route: 048
     Dates: start: 20040101, end: 20060101
  2. YASMIN [Suspect]
     Route: 048
     Dates: start: 20080330, end: 20080412
  3. THYROID TAB [Concomitant]
     Dates: start: 20030101
  4. SIMVASTATIN [Concomitant]
     Dates: start: 20030101
  5. WELLBUTRIN XL [Concomitant]
     Dates: start: 20030101
  6. TOPAMAX [Concomitant]
     Dates: start: 20030101

REACTIONS (4)
  - MENTAL DISORDER [None]
  - PAIN [None]
  - SKIN DISCOLOURATION [None]
  - THROMBOPHLEBITIS SUPERFICIAL [None]
